FAERS Safety Report 8144293-6 (Version None)
Quarter: 2012Q1

REPORT INFORMATION
  Report Type: 
  Country: None (occurrence: None)
  Receive Date: 20120217
  Receipt Date: 20120214
  Transmission Date: 20120608
  Serious: Yes (Death, Other)
  Sender: FDA-Public Use
  Company Number: CN-ROCHE-1026565

PATIENT
  Sex: Female
  Weight: 50 kg

DRUGS (8)
  1. GLUCOSE INJECTION [Concomitant]
     Indication: INFUSION
     Route: 041
     Dates: start: 20111228, end: 20111228
  2. SODIUM CHLORIDE [Suspect]
     Indication: INFUSION
     Dosage: RITUXIMAB SOLUTION
     Route: 041
     Dates: start: 20111228, end: 20111228
  3. MABTHERA [Suspect]
     Indication: NON-HODGKIN'S LYMPHOMA
     Route: 041
     Dates: start: 20111228, end: 20111228
  4. INSULIN INJECTION [Concomitant]
     Indication: MALNUTRITION
     Route: 041
     Dates: start: 20111225, end: 20111228
  5. GLUCOSE INJECTION [Concomitant]
     Indication: FLUID REPLACEMENT
     Route: 041
     Dates: start: 20111225, end: 20111228
  6. ALBUMIN (HUMAN) [Concomitant]
     Indication: NUTRITIONAL SUPPORT
     Route: 041
     Dates: start: 20111228, end: 20111228
  7. SHENGFU [Concomitant]
     Indication: IMMUNE ENHANCEMENT THERAPY
     Route: 041
     Dates: start: 20111228, end: 20111228
  8. ASCORBIC ACID [Concomitant]
     Indication: MALNUTRITION
     Route: 041
     Dates: start: 20111225, end: 20111228

REACTIONS (6)
  - LOSS OF CONSCIOUSNESS [None]
  - NAUSEA [None]
  - PYREXIA [None]
  - VOMITING [None]
  - CARDIAC ARREST [None]
  - INFUSION RELATED REACTION [None]
